FAERS Safety Report 15574953 (Version 1)
Quarter: 2018Q4

REPORT INFORMATION
  Report Type: Spontaneous
  Country: US (occurrence: US)
  Receive Date: 20181101
  Receipt Date: 20181101
  Transmission Date: 20190205
  Serious: Yes (Life-Threatening, Hospitalization, Disabling, Other)
  Sender: FDA-Public Use
  Company Number: None

PATIENT
  Age: 61 Year
  Sex: Male
  Weight: 60.3 kg

DRUGS (1)
  1. CLOZAPINE. [Suspect]
     Active Substance: CLOZAPINE
     Indication: DEMENTIA
     Dates: start: 20180727

REACTIONS (7)
  - Upper respiratory tract infection [None]
  - Contusion [None]
  - Somnolence [None]
  - Hallucination [None]
  - Insomnia [None]
  - Nightmare [None]
  - Weight decreased [None]

NARRATIVE: CASE EVENT DATE: 20180801
